FAERS Safety Report 9034461 (Version 1)
Quarter: 2013Q1

REPORT INFORMATION
  Report Type: Spontaneous
  Country: US (occurrence: None)
  Receive Date: 20130116
  Receipt Date: 20130116
  Transmission Date: 20140127
  Serious: No
  Sender: FDA-Public Use
  Company Number: None

PATIENT
  Age: 67 Year
  Sex: Male

DRUGS (1)
  1. LUPRON [Suspect]
     Route: 030
     Dates: start: 20121207

REACTIONS (2)
  - Musculoskeletal pain [None]
  - Insomnia [None]
